FAERS Safety Report 9618735 (Version 1)
Quarter: 2013Q4

REPORT INFORMATION
  Report Type: Other
  Country: US (occurrence: US)
  Receive Date: 20131014
  Receipt Date: 20131014
  Transmission Date: 20140711
  Serious: Yes (Disabling, Other)
  Sender: FDA-Public Use
  Company Number: US-ENDO PHARMACEUTICALS INC.-TRIP20130018

PATIENT
  Sex: Female

DRUGS (1)
  1. TRI-PREVIFEM TABLETS [Suspect]
     Indication: ORAL CONTRACEPTION
     Dosage: UNKNOWN
     Route: 048

REACTIONS (2)
  - Injury [Not Recovered/Not Resolved]
  - Unwanted pregnancy [Recovered/Resolved]
